FAERS Safety Report 25498369 (Version 1)
Quarter: 2025Q3

REPORT INFORMATION
  Report Type: Spontaneous
  Country: EU (occurrence: EU)
  Receive Date: 20250701
  Receipt Date: 20250701
  Transmission Date: 20251020
  Serious: Yes (Other)
  Sender: ACCORD
  Company Number: None

PATIENT
  Age: 42 Year
  Sex: Female
  Weight: 70 kg

DRUGS (12)
  1. CAPECITABINE [Suspect]
     Active Substance: CAPECITABINE
     Indication: Triple negative breast cancer
     Dates: start: 20250206, end: 20250220
  2. EPIRUBICIN [Suspect]
     Active Substance: EPIRUBICIN
     Indication: Triple negative breast cancer
     Dates: start: 20241014, end: 20241216
  3. CYCLOPHOSPHAMIDE [Suspect]
     Active Substance: CYCLOPHOSPHAMIDE
     Indication: Triple negative breast cancer
     Dates: start: 20241014, end: 20241216
  4. PEMBROLIZUMAB [Suspect]
     Active Substance: PEMBROLIZUMAB
     Indication: Triple negative breast cancer
     Dates: start: 20240711, end: 20241216
  5. ACETAMINOPHEN [Concomitant]
     Active Substance: ACETAMINOPHEN
  6. SODIUM BICARBONATE [Concomitant]
     Active Substance: SODIUM BICARBONATE
  7. ONDANSETRON [Concomitant]
     Active Substance: ONDANSETRON
  8. LOPERAMIDE [Concomitant]
     Active Substance: LOPERAMIDE
  9. MONTMORILLONITE [Concomitant]
     Active Substance: MONTMORILLONITE
  10. DOMPERIDONE [Concomitant]
     Active Substance: DOMPERIDONE
  11. DEXERYL [Concomitant]
  12. CAPECITABINE [Suspect]
     Active Substance: CAPECITABINE
     Indication: Triple negative breast cancer
     Dates: start: 20250317, end: 20250404

REACTIONS (2)
  - Left ventricular failure [Not Recovered/Not Resolved]
  - Hypothyroidism [Not Recovered/Not Resolved]

NARRATIVE: CASE EVENT DATE: 20250127
